FAERS Safety Report 6825516-X (Version None)
Quarter: 2010Q3

REPORT INFORMATION
  Report Type: 
  Country: None (occurrence: None)
  Receive Date: 20100708
  Receipt Date: 20070604
  Transmission Date: 20110219
  Serious: Yes (Other)
  Sender: FDA-Public Use
  Company Number: US-PFIZER INC-2007000937

PATIENT
  Sex: Female
  Weight: 62.9 kg

DRUGS (3)
  1. CHANTIX [Suspect]
     Indication: SMOKING CESSATION THERAPY
     Route: 048
     Dates: start: 20061001
  2. FLONASE [Concomitant]
     Dosage: 1 SPRAY EACH NOSTRIL
     Route: 045
  3. COMBIVENT [Concomitant]
     Indication: DYSPNOEA
     Dosage: 2 PUFFS,QID PRN
     Route: 055

REACTIONS (8)
  - ABDOMINAL DISTENSION [None]
  - ASTHENIA [None]
  - CHEST PAIN [None]
  - CHOLECYSTITIS [None]
  - CONSTIPATION [None]
  - FLATULENCE [None]
  - INFLUENZA [None]
  - PYREXIA [None]
